FAERS Safety Report 8266495-0 (Version None)
Quarter: 2012Q2

REPORT INFORMATION
  Report Type: 
  Country: None (occurrence: None)
  Receive Date: 20120406
  Receipt Date: 20120328
  Transmission Date: 20120825
  Serious: Yes (Hospitalization)
  Sender: FDA-Public Use
  Company Number: BR-ASTRAZENECA-2012SE21219

PATIENT
  Age: 57 Year
  Sex: Male
  Weight: 86.5 kg

DRUGS (6)
  1. AMLODIPINE BESYLATE [Concomitant]
     Route: 048
  2. BENICAR [Concomitant]
     Route: 048
  3. METOPROLOL SUCCINATE [Suspect]
     Indication: HYPERTENSION
     Route: 048
     Dates: start: 20070101
  4. BRILINTA [Suspect]
     Indication: CEREBRAL ISCHAEMIA
     Dosage: TWO TIMES DAILY
     Route: 048
     Dates: start: 20120322
  5. CRESTOR [Suspect]
     Indication: BLOOD CHOLESTEROL INCREASED
     Route: 048
     Dates: start: 20070101, end: 20120321
  6. ASPIRIN [Concomitant]
     Route: 048

REACTIONS (2)
  - CEREBRAL ISCHAEMIA [None]
  - OFF LABEL USE [None]
